FAERS Safety Report 9669025 (Version 3)
Quarter: 2013Q4

REPORT INFORMATION
  Report Type: Spontaneous
  Country: US (occurrence: US)
  Receive Date: 20131105
  Receipt Date: 20131112
  Transmission Date: 20140711
  Serious: Yes (Death, Other)
  Sender: FDA-Public Use
  Company Number: US-PFIZER INC-2013313798

PATIENT
  Age: 39 Year
  Sex: Female

DRUGS (4)
  1. MORPHINE SULFATE [Suspect]
     Indication: DRUG ABUSE
     Dosage: UNK
     Route: 048
  2. OXYCODONE HYDROCHLORIDE [Suspect]
     Indication: DRUG ABUSE
     Dosage: UNK
     Route: 048
  3. OXYMORPHONE [Suspect]
     Indication: DRUG ABUSE
     Dosage: UNK
     Route: 065
  4. ALCOHOL [Suspect]
     Indication: ALCOHOL USE
     Dosage: UNK
     Route: 048

REACTIONS (6)
  - Overdose [Fatal]
  - Victim of homicide [Fatal]
  - Substance abuse [Unknown]
  - Drug level increased [Unknown]
  - Loss of consciousness [Unknown]
  - Respiratory arrest [Unknown]
